FAERS Safety Report 7104016-6 (Version None)
Quarter: 2010Q4

REPORT INFORMATION
  Report Type: 
  Country: None (occurrence: None)
  Receive Date: 20101115
  Receipt Date: 20100623
  Transmission Date: 20110411
  Serious: No
  Sender: FDA-Public Use
  Company Number: US-ALLERGAN-1006231US

PATIENT
  Age: 45 Year
  Sex: Female
  Weight: 44.444 kg

DRUGS (1)
  1. BOTOX COSMETIC [Suspect]
     Indication: SKIN WRINKLING
     Dosage: 52 UNITS, SINGLE
     Route: 030
     Dates: start: 20100428, end: 20100428

REACTIONS (3)
  - ERYTHEMA [None]
  - EYELID OEDEMA [None]
  - HEADACHE [None]
